FAERS Safety Report 21045796 (Version 3)
Quarter: 2025Q4

REPORT INFORMATION
  Report Type: Spontaneous
  Country: US (occurrence: US)
  Receive Date: 20220706
  Receipt Date: 20251124
  Transmission Date: 20260118
  Serious: No
  Sender: ORGANON
  Company Number: US-ORGANON-O2206USA002548

PATIENT
  Age: 43 Year
  Sex: Male

DRUGS (4)
  1. ASMANEX [Suspect]
     Active Substance: MOMETASONE FUROATE
     Indication: Asthma
     Dosage: UNK (60 DOSE)
  2. ASMANEX [Suspect]
     Active Substance: MOMETASONE FUROATE
     Dosage: 220MCG, 30 DOSE, 1 PUFF DAILY
     Dates: start: 20220613
  3. ASMANEX [Suspect]
     Active Substance: MOMETASONE FUROATE
     Indication: Asthma
     Dosage: 220MCG, 30 DOSE, 1 PUFF DAILY
     Dates: start: 20220624
  4. ASMANEX [Suspect]
     Active Substance: MOMETASONE FUROATE
     Indication: Asthma
     Dosage: 1 PUFF 1X A DAY (60 DOSE)
     Dates: start: 20251021

REACTIONS (14)
  - Chest discomfort [Unknown]
  - Dyspnoea [Unknown]
  - Device difficult to use [Unknown]
  - Product dose omission issue [Unknown]
  - Circumstance or information capable of leading to medication error [Unknown]
  - Wrong technique in device usage process [Unknown]
  - Device malfunction [Unknown]
  - Poor quality device used [Unknown]
  - Product taste abnormal [Unknown]
  - Burning sensation [Not Recovered/Not Resolved]
  - Chest discomfort [Not Recovered/Not Resolved]
  - Incorrect dose administered by device [Unknown]
  - Device malfunction [Unknown]
  - Poor quality product administered [Unknown]

NARRATIVE: CASE EVENT DATE: 20220601
